FAERS Safety Report 24334720 (Version 1)
Quarter: 2024Q3

REPORT INFORMATION
  Report Type: Spontaneous
  Country: US (occurrence: None)
  Receive Date: 20240918
  Receipt Date: 20240918
  Transmission Date: 20241017
  Serious: Yes (Hospitalization)
  Sender: Public
  Company Number: None

PATIENT
  Age: 61 Year
  Sex: Female
  Weight: 92.25 kg

DRUGS (11)
  1. WEGOVY [Suspect]
     Active Substance: SEMAGLUTIDE
     Indication: Obesity
     Dosage: OTHER QUANTITY : 1 INJECTION(S);?OTHER FREQUENCY : ONCE A WEEK;?
     Route: 030
     Dates: start: 20240807, end: 20240904
  2. ARMOUR THYROID [Concomitant]
     Active Substance: THYROID, PORCINE
  3. MAGNESIUM GLYCINATE [Concomitant]
     Active Substance: MAGNESIUM GLYCINATE
  4. keto dhea [Concomitant]
  5. EPA/DHA [Concomitant]
  6. ONE multivitamin [Concomitant]
  7. CURCUMASORB [Concomitant]
  8. Activated B-12 Guard [Concomitant]
  9. CALCIUM\MAGNESIUM [Concomitant]
     Active Substance: CALCIUM\MAGNESIUM
  10. Primal Defense Ultra Ultimate Probiotic Formual [Concomitant]
  11. VITAMIN D3 [Concomitant]
     Active Substance: CHOLECALCIFEROL

REACTIONS (4)
  - Vomiting [None]
  - Pyrexia [None]
  - Chills [None]
  - Appendicitis [None]

NARRATIVE: CASE EVENT DATE: 20240910
